FAERS Safety Report 15567077 (Version 9)
Quarter: 2020Q3

REPORT INFORMATION
  Report Type: Report from Study
  Country: JP (occurrence: JP)
  Receive Date: 20181030
  Receipt Date: 20200713
  Transmission Date: 20201102
  Serious: Yes (Death, Life-Threatening, Hospitalization, Disabling, Other)
  Sender: FDA-Public Use
  Company Number: JP-ACTELION-A-CH2018-180858

PATIENT
  Age: 52 Year
  Sex: Female
  Weight: 32.7 kg

DRUGS (26)
  1. PREDONINE [Suspect]
     Active Substance: PREDNISOLONE
     Indication: SJOGREN^S SYNDROME
     Dosage: 40 MG, QD
     Route: 048
     Dates: start: 20180309
  2. UPTRAVI [Suspect]
     Active Substance: SELEXIPAG
     Dosage: 0.4 MG, BID
     Route: 048
     Dates: start: 20181003, end: 20181004
  3. PREDONINE [Suspect]
     Active Substance: PREDNISOLONE
     Dosage: 25 MG, QD
     Route: 048
     Dates: start: 20180427, end: 20180510
  4. NEXIUM [Concomitant]
     Active Substance: ESOMEPRAZOLE MAGNESIUM
     Dosage: 20 MG, QD
     Dates: start: 20180228
  5. ROZEREM [Concomitant]
     Active Substance: RAMELTEON
  6. DIART [Concomitant]
     Active Substance: AZOSEMIDE
     Dosage: 30 MG, QD
  7. UPTRAVI [Suspect]
     Active Substance: SELEXIPAG
     Indication: PULMONARY ARTERIAL HYPERTENSION
     Dosage: 0.4 MG, QD
     Route: 048
     Dates: start: 20180305, end: 20180401
  8. OPSUMIT [Suspect]
     Active Substance: MACITENTAN
     Indication: PULMONARY ARTERIAL HYPERTENSION
     Dosage: 10 MG, QD
     Route: 048
     Dates: start: 20180302, end: 20180628
  9. PREDONINE [Suspect]
     Active Substance: PREDNISOLONE
     Dosage: 30 MG, QD
     Route: 048
     Dates: start: 20180413, end: 20180426
  10. PREDONINE [Suspect]
     Active Substance: PREDNISOLONE
     Dosage: 18 MG, QD
     Route: 048
     Dates: start: 20180601, end: 20180628
  11. UPTRAVI [Suspect]
     Active Substance: SELEXIPAG
     Dosage: 0.2 MG, BID
     Route: 048
     Dates: start: 20180425, end: 20181002
  12. ADCIRCA [Concomitant]
     Active Substance: TADALAFIL
     Indication: PULMONARY ARTERIAL HYPERTENSION
     Dosage: 40 MG, QD
  13. MIYA?BM [Concomitant]
     Active Substance: CLOSTRIDIUM BUTYRICUM SPORES STRAIN M-55
     Dosage: 3 G, QD
     Dates: start: 20180927
  14. UPTRAVI [Suspect]
     Active Substance: SELEXIPAG
     Dosage: 0.8 MG, QD
     Route: 048
     Dates: start: 20180402, end: 20180410
  15. PREDONINE [Suspect]
     Active Substance: PREDNISOLONE
     Dosage: 22.5 MG, QD
     Route: 048
     Dates: start: 20180511, end: 20180517
  16. SPIRONOLACTONE. [Concomitant]
     Active Substance: SPIRONOLACTONE
     Dosage: 25 MG, QD
  17. WARFARIN [Concomitant]
     Active Substance: WARFARIN
     Dosage: UNK
     Dates: end: 20180915
  18. UPTRAVI [Suspect]
     Active Substance: SELEXIPAG
     Dosage: 0.2 MG, BID
     Route: 048
     Dates: start: 20180223, end: 20180402
  19. PREDONINE [Suspect]
     Active Substance: PREDNISOLONE
     Dosage: 35 MG, QD
     Route: 048
     Dates: start: 20180331, end: 20180413
  20. PREDONINE [Suspect]
     Active Substance: PREDNISOLONE
     Dosage: 16 MG, QD
     Route: 048
     Dates: start: 20180629
  21. BAKTAR [Suspect]
     Active Substance: SULFAMETHOXAZOLE\TRIMETHOPRIM
     Indication: PROPHYLAXIS
     Dosage: 1 DF, QD
     Route: 048
     Dates: start: 20180319, end: 20180413
  22. LASIX [Concomitant]
     Active Substance: FUROSEMIDE
     Dosage: 20 MG, QD
  23. SLOW?K [Concomitant]
     Active Substance: POTASSIUM CHLORIDE
     Dosage: 1200 MG, QD
     Dates: end: 20180815
  24. SAMSCA [Concomitant]
     Active Substance: TOLVAPTAN
     Indication: ATRIAL SEPTAL DEFECT
     Dosage: 7.5 MG, QD
     Dates: start: 20180306, end: 20180325
  25. OXYGEN. [Concomitant]
     Active Substance: OXYGEN
  26. PREDONINE [Suspect]
     Active Substance: PREDNISOLONE
     Dosage: 20 MG, QD
     Route: 048
     Dates: start: 20180517, end: 20180531

REACTIONS (23)
  - Staphylococcal bacteraemia [Recovered/Resolved]
  - Brain natriuretic peptide increased [Not Recovered/Not Resolved]
  - Blood alkaline phosphatase increased [Recovered/Resolved]
  - Pneumonia [Recovered/Resolved with Sequelae]
  - Hip arthroplasty [Unknown]
  - Lymphoedema [Not Recovered/Not Resolved]
  - Oxygen saturation decreased [Not Recovered/Not Resolved]
  - Respiratory failure [Fatal]
  - Hypercapnia [Recovered/Resolved with Sequelae]
  - Pulmonary congestion [Recovering/Resolving]
  - Fall [Recovered/Resolved with Sequelae]
  - Pulmonary arterial pressure abnormal [Not Recovered/Not Resolved]
  - Osteomyelitis [Recovered/Resolved with Sequelae]
  - Ventricular tachycardia [Recovered/Resolved]
  - Femur fracture [Recovered/Resolved with Sequelae]
  - Pulmonary function test decreased [Recovered/Resolved with Sequelae]
  - Platelet count decreased [Recovered/Resolved]
  - Gamma-glutamyltransferase increased [Recovering/Resolving]
  - Oedema peripheral [Not Recovered/Not Resolved]
  - Post procedural infection [Recovered/Resolved with Sequelae]
  - Cytomegalovirus infection [Recovered/Resolved]
  - Pulmonary arterial hypertension [Not Recovered/Not Resolved]
  - Condition aggravated [Not Recovered/Not Resolved]

NARRATIVE: CASE EVENT DATE: 20180301
